FAERS Safety Report 7776054-1 (Version None)
Quarter: 2011Q3

REPORT INFORMATION
  Report Type: 
  Country: None (occurrence: None)
  Receive Date: 20110923
  Receipt Date: 20110914
  Transmission Date: 20111222
  Serious: Yes (Other)
  Sender: FDA-Public Use
  Company Number: US-ASTRAZENECA-2011SE55496

PATIENT
  Age: 47 Year
  Sex: Female

DRUGS (2)
  1. FASLODEX [Suspect]
     Route: 030
  2. FASLODEX [Suspect]
     Route: 030
     Dates: start: 20090201

REACTIONS (3)
  - SWELLING FACE [None]
  - LYMPHOMA [None]
  - FLUSHING [None]
